FAERS Safety Report 4744814-7 (Version None)
Quarter: 2005Q3

REPORT INFORMATION
  Report Type: 
  Country: None (occurrence: None)
  Receive Date: 20050815
  Receipt Date: 20050802
  Transmission Date: 20060218
  Serious: Yes (Other)
  Sender: FDA-Public Use
  Company Number: 200517149GDDC

PATIENT
  Age: 35 Year
  Sex: Male

DRUGS (2)
  1. ARAVA [Suspect]
     Indication: PSORIATIC ARTHROPATHY
  2. VOLTAROL [Concomitant]

REACTIONS (5)
  - COLD SWEAT [None]
  - DIARRHOEA [None]
  - DISORIENTATION [None]
  - HALLUCINATION [None]
  - NAUSEA [None]
